FAERS Safety Report 16577409 (Version 1)
Quarter: 2019Q3

REPORT INFORMATION
  Report Type: Report from Study
  Country: US (occurrence: US)
  Receive Date: 20190716
  Receipt Date: 20190716
  Transmission Date: 20191004
  Serious: Yes (Hospitalization, Other)
  Sender: FDA-Public Use
  Company Number: US-ROCHE-2354988

PATIENT

DRUGS (2)
  1. CELLCEPT [Suspect]
     Active Substance: MYCOPHENOLATE MOFETIL\MYCOPHENOLATE MOFETIL HYDROCHLORIDE
     Dosage: 3 TABLETS BID
     Route: 064
     Dates: start: 20160715, end: 20171101
  2. CELLCEPT [Suspect]
     Active Substance: MYCOPHENOLATE MOFETIL\MYCOPHENOLATE MOFETIL HYDROCHLORIDE
     Indication: PRODUCT USED FOR UNKNOWN INDICATION
     Dosage: 3 TABLETS BID
     Route: 064
     Dates: start: 20160802, end: 2017

REACTIONS (3)
  - Foetal exposure during pregnancy [Unknown]
  - Jaundice [Recovering/Resolving]
  - Foetal growth restriction [Unknown]

NARRATIVE: CASE EVENT DATE: 20180609
